FAERS Safety Report 16567745 (Version 3)
Quarter: 2019Q3

REPORT INFORMATION
  Report Type: Report from Study
  Country: US (occurrence: US)
  Receive Date: 20190712
  Receipt Date: 20190815
  Transmission Date: 20191004
  Serious: Yes (Death, Hospitalization)
  Sender: FDA-Public Use
  Company Number: US-TAKEDA-2018TUS035015

PATIENT
  Sex: Male

DRUGS (1)
  1. PONATINIB [Suspect]
     Active Substance: PONATINIB
     Indication: ACUTE LYMPHOCYTIC LEUKAEMIA
     Dosage: 45 MILLIGRAM, QD
     Route: 048
     Dates: start: 20181121

REACTIONS (26)
  - Fluid overload [Unknown]
  - White blood cell disorder [Unknown]
  - Atrial fibrillation [Unknown]
  - Skin disorder [Unknown]
  - Red cell distribution width abnormal [Unknown]
  - Dysphonia [Recovered/Resolved]
  - Glomerular filtration rate abnormal [Unknown]
  - Blood albumin abnormal [Unknown]
  - Blood urea abnormal [Unknown]
  - Red blood cell count abnormal [Unknown]
  - Mean cell volume abnormal [Unknown]
  - Monocyte count abnormal [Unknown]
  - Platelet count decreased [Unknown]
  - Blood lactate dehydrogenase abnormal [Unknown]
  - Oedema peripheral [Unknown]
  - Decreased appetite [Recovering/Resolving]
  - Blood alkaline phosphatase abnormal [Unknown]
  - Death [Fatal]
  - Flatulence [Unknown]
  - Carbon dioxide abnormal [Unknown]
  - Blood creatinine abnormal [Unknown]
  - Haemoglobin abnormal [Unknown]
  - Constipation [Recovering/Resolving]
  - Hypertension [Unknown]
  - Rhonchi [Recovering/Resolving]
  - Haematocrit abnormal [Unknown]
